FAERS Safety Report 4445412-5 (Version None)
Quarter: 2004Q3

REPORT INFORMATION
  Report Type: 
  Country: None (occurrence: None)
  Receive Date: 20040730
  Receipt Date: 20030811
  Transmission Date: 20050211
  Serious: Yes (Other)
  Sender: FDA-Public Use
  Company Number: 2003-08-0950

PATIENT

DRUGS (1)
  1. INTRON A [Suspect]
     Indication: MALIGNANT MELANOMA
     Dosage: INTRAVENOUS
     Route: 042

REACTIONS (3)
  - CARDIOMYOPATHY [None]
  - EOSINOPHILIA [None]
  - SKIN LESION [None]
